FAERS Safety Report 16907199 (Version 2)
Quarter: 2019Q4

REPORT INFORMATION
  Report Type: Spontaneous
  Country: CA (occurrence: CA)
  Receive Date: 20191011
  Receipt Date: 20191014
  Transmission Date: 20200122
  Serious: Yes (Hospitalization)
  Sender: FDA-Public Use
  Company Number: CA-TEVA-2019-CA-1119309

PATIENT
  Age: 86 Year
  Sex: Female

DRUGS (8)
  1. GALANTAMINE. [Concomitant]
     Active Substance: GALANTAMINE
  2. CALCIUM [Concomitant]
     Active Substance: CALCIUM
  3. RALOXIFENE. [Concomitant]
     Active Substance: RALOXIFENE
  4. BETACAROTENE/ COPPER/RIBOFLAVIN/SELENIUM/TOCOPHERSOLAN/VITAMINC/ZINC [Concomitant]
  5. VITAMIN D [Concomitant]
     Active Substance: VITAMIN D NOS
  6. VENLAFAXINE HYDROCHLORIDE. [Suspect]
     Active Substance: VENLAFAXINE HYDROCHLORIDE
     Indication: DEPRESSION
     Dosage: 112.5 MILLIGRAM DAILY;
     Route: 048
  7. ASA [Suspect]
     Active Substance: ASPIRIN
     Indication: CEREBROVASCULAR ACCIDENT
     Route: 048
  8. CALCIUM D- PANTOTHENATE/NICOTINAMIDE/PYRIDOXINEHYDROCHLORIDE/RIBOFLAVI [Concomitant]

REACTIONS (3)
  - Platelet count increased [Recovered/Resolved]
  - Contusion [Recovered/Resolved]
  - Ecchymosis [Recovered/Resolved]
